FAERS Safety Report 4790340-9 (Version None)
Quarter: 2005Q4

REPORT INFORMATION
  Report Type: 
  Country: None (occurrence: None)
  Receive Date: 20051005
  Receipt Date: 20051005
  Transmission Date: 20060501
  Serious: Yes (Life-Threatening, Hospitalization)
  Sender: FDA-Public Use
  Company Number: None

PATIENT
  Sex: Male

DRUGS (6)
  1. ASPIRIN [Suspect]
  2. ADDERALL 10 [Concomitant]
  3. DEPAKOTE [Concomitant]
  4. TEMAZEPAM [Concomitant]
  5. PANTOP [Concomitant]
  6. FLUOXETINE [Concomitant]

REACTIONS (4)
  - HAEMATEMESIS [None]
  - HAEMATOCRIT DECREASED [None]
  - HAEMOGLOBIN DECREASED [None]
  - RECTAL HAEMORRHAGE [None]
